FAERS Safety Report 7458494-3 (Version None)
Quarter: 2011Q2

REPORT INFORMATION
  Report Type: 
  Country: None (occurrence: None)
  Receive Date: 20110504
  Receipt Date: 20110428
  Transmission Date: 20111010
  Serious: Yes (Other)
  Sender: FDA-Public Use
  Company Number: CA-ABBOTT-11P-028-0722601-00

PATIENT
  Sex: Female
  Weight: 53.572 kg

DRUGS (5)
  1. DURAGESIC [Concomitant]
     Indication: PAIN
     Route: 061
     Dates: start: 20090101
  2. PURINETHOL [Concomitant]
     Indication: CROHN'S DISEASE
     Route: 048
     Dates: start: 20060101
  3. VITAMIN B-12 [Concomitant]
     Indication: CROHN'S DISEASE
     Dosage: 1MG/1000MCG ONCE EVERY 3 WEEKS
     Route: 058
     Dates: start: 20060101
  4. HUMIRA [Suspect]
     Indication: CROHN'S DISEASE
     Route: 058
     Dates: start: 20060101
  5. MORPHINE [Concomitant]
     Indication: PAIN
     Route: 058
     Dates: start: 20110101

REACTIONS (18)
  - ABDOMINAL PAIN [None]
  - SKIN EXFOLIATION [None]
  - HAEMATOCHEZIA [None]
  - INTESTINAL FISTULA INFECTION [None]
  - PAIN [None]
  - SKIN FISSURES [None]
  - ORAL FUNGAL INFECTION [None]
  - GENITAL INFECTION FUNGAL [None]
  - HEADACHE [None]
  - WEIGHT INCREASED [None]
  - DYSPNOEA [None]
  - INJECTION SITE PAIN [None]
  - MUSCULOSKELETAL PAIN [None]
  - FISTULA [None]
  - ABDOMINAL DISTENSION [None]
  - MONOCLONAL GAMMOPATHY [None]
  - MUSCULOSKELETAL CHEST PAIN [None]
  - MASS [None]
